FAERS Safety Report 24602211 (Version 1)
Quarter: 2024Q4

REPORT INFORMATION
  Report Type: Spontaneous
  Country: TR (occurrence: TR)
  Receive Date: 20241111
  Receipt Date: 20241111
  Transmission Date: 20250115
  Serious: Yes (Other)
  Sender: ABBVIE
  Company Number: TR-ABBVIE-5995105

PATIENT

DRUGS (1)
  1. RINVOQ [Suspect]
     Active Substance: UPADACITINIB
     Indication: Vitiligo
     Route: 048
     Dates: start: 20241023

REACTIONS (2)
  - Papillary thyroid cancer [Unknown]
  - Off label use [Unknown]

NARRATIVE: CASE EVENT DATE: 20240101
